FAERS Safety Report 6972963-1 (Version None)
Quarter: 2010Q3

REPORT INFORMATION
  Report Type: 
  Country: None (occurrence: None)
  Receive Date: 20100909
  Receipt Date: 20100728
  Transmission Date: 20110219
  Serious: No
  Sender: FDA-Public Use
  Company Number: US-KINGPHARMUSA00001-K201000976

PATIENT
  Age: 40 Year
  Sex: Female

DRUGS (4)
  1. EMBEDA [Suspect]
     Indication: PAIN IN EXTREMITY
     Dosage: 60 MG, BID
     Route: 048
     Dates: start: 20100601
  2. ZANAFLEX [Concomitant]
  3. CLONAZEPAM [Concomitant]
     Indication: TREMOR
  4. ARTANE [Concomitant]
     Indication: MUSCLE SPASMS

REACTIONS (3)
  - ACNE [None]
  - BLISTER [None]
  - RASH ERYTHEMATOUS [None]
